FAERS Safety Report 10213666 (Version 2)
Quarter: 2014Q2

REPORT INFORMATION
  Report Type: Spontaneous
  Country: AU (occurrence: AU)
  Receive Date: 20140603
  Receipt Date: 20140603
  Transmission Date: 20141212
  Serious: Yes (Hospitalization)
  Sender: FDA-Public Use
  Company Number: AU-B.I. PHARMACEUTICALS,INC./RIDGEFIELD-2014-BI-22511AU

PATIENT
  Age: 70 Year
  Sex: Male
  Weight: 100 kg

DRUGS (6)
  1. PRADAXA [Suspect]
     Indication: ATRIAL FIBRILLATION
     Dosage: 220 MG
     Route: 065
     Dates: start: 20140415, end: 20140429
  2. RANITIDINE [Concomitant]
     Dosage: 300 MG
     Route: 065
     Dates: start: 2008
  3. DIGOXIN [Concomitant]
     Dosage: 125 MCG
     Route: 065
     Dates: start: 2008
  4. NEXIUM [Concomitant]
     Dosage: 20 MG
     Route: 065
     Dates: start: 201404
  5. SIMVASTATIN [Concomitant]
     Dosage: 40 MG
     Route: 065
     Dates: start: 2008
  6. BISOPROLOL [Concomitant]
     Dosage: 10 MG
     Route: 065
     Dates: start: 2008

REACTIONS (1)
  - Femoral neck fracture [Recovered/Resolved]
